FAERS Safety Report 7718536-4 (Version None)
Quarter: 2011Q3

REPORT INFORMATION
  Report Type: 
  Country: None (occurrence: None)
  Receive Date: 20110824
  Receipt Date: 20110817
  Transmission Date: 20111222
  Serious: Yes (Hospitalization)
  Sender: FDA-Public Use
  Company Number: 2011SP023768

PATIENT
  Age: 60 Year
  Sex: Female

DRUGS (15)
  1. ZOFRAN [Concomitant]
  2. PANTOPRAZOLE [Concomitant]
  3. TEMODAL [Suspect]
     Indication: GLIOBLASTOMA MULTIFORME
     Dosage: 140 MG;QD;
     Dates: start: 20110503
  4. COLOXYL WITH SENNA [Concomitant]
  5. DEXAMETHASONE [Concomitant]
  6. MOTILIUM [Concomitant]
  7. ZOFRAN [Concomitant]
  8. DILANTIN [Concomitant]
  9. AVASTIN [Concomitant]
  10. DILANTIN [Concomitant]
  11. ONDANSETRON [Concomitant]
  12. FAMCICLOVIR [Concomitant]
  13. STEMZINE [Concomitant]
  14. DEXAMETHASONE [Concomitant]
  15. BACTRIM [Concomitant]

REACTIONS (13)
  - PARAESTHESIA [None]
  - VOMITING [None]
  - NEOPLASM PROGRESSION [None]
  - BRAIN OEDEMA [None]
  - CONDITION AGGRAVATED [None]
  - CONVULSION [None]
  - NAUSEA [None]
  - GLIOBLASTOMA MULTIFORME [None]
  - DYSARTHRIA [None]
  - HYPOKINESIA [None]
  - DYSKINESIA [None]
  - CONSTIPATION [None]
  - HYPOAESTHESIA [None]
